FAERS Safety Report 5252331-3 (Version None)
Quarter: 2007Q1

REPORT INFORMATION
  Report Type: 
  Country: None (occurrence: None)
  Receive Date: 20070301
  Receipt Date: 20060512
  Transmission Date: 20070707
  Serious: No
  Sender: FDA-Public Use
  Company Number: US-BRISTOL-MYERS SQUIBB COMPANY-13375738

PATIENT
  Sex: Female
  Weight: 73 kg

DRUGS (9)
  1. TAXOL [Suspect]
     Indication: BREAST CANCER
     Route: 042
     Dates: start: 20050101, end: 20050301
  2. BENADRYL [Concomitant]
  3. COMPAZINE [Concomitant]
  4. ATIVAN [Concomitant]
  5. PAMELOR [Concomitant]
  6. AMBIEN [Concomitant]
  7. PREVACID [Concomitant]
  8. ZELNORM [Concomitant]
  9. CORGARD [Concomitant]

REACTIONS (1)
  - NEUROPATHY [None]
